FAERS Safety Report 17000272 (Version 2)
Quarter: 2019Q4

REPORT INFORMATION
  Report Type: Spontaneous
  Country: US (occurrence: US)
  Receive Date: 20191106
  Receipt Date: 20191114
  Transmission Date: 20200122
  Serious: Yes (Life-Threatening, Hospitalization)
  Sender: FDA-Public Use
  Company Number: US-TEVA-2019-US-1132065

PATIENT
  Age: 25 Year
  Sex: Female

DRUGS (2)
  1. LOPERAMIDE [Suspect]
     Active Substance: LOPERAMIDE
     Indication: DRUG WITHDRAWAL SYNDROME
     Route: 065
  2. LOPERAMIDE [Suspect]
     Active Substance: LOPERAMIDE
     Indication: INTENTIONAL PRODUCT MISUSE

REACTIONS (6)
  - Electrocardiogram QT prolonged [Recovered/Resolved]
  - Arrhythmia [Recovered/Resolved]
  - Syncope [Recovered/Resolved]
  - Toxicity to various agents [Unknown]
  - Electrocardiogram QRS complex prolonged [Recovered/Resolved]
  - Intentional product misuse [Unknown]
